FAERS Safety Report 9222408 (Version 1)
Quarter: 2013Q2

REPORT INFORMATION
  Report Type: Spontaneous
  Country: US (occurrence: US)
  Receive Date: 20130410
  Receipt Date: 20130410
  Transmission Date: 20140414
  Serious: Yes (Hospitalization)
  Sender: FDA-Public Use
  Company Number: US-BAYER-2013-044382

PATIENT
  Age: 44 Year
  Sex: Female

DRUGS (9)
  1. YAZ [Suspect]
     Indication: MENOPAUSAL SYMPTOMS
  2. CLARITAN [Concomitant]
     Indication: HYPERSENSITIVITY
  3. LUNESTA [Concomitant]
  4. MVI [Concomitant]
  5. LEVOTHYROXINE [Concomitant]
  6. SYNTHROID [Concomitant]
  7. DILAUDID [Concomitant]
     Indication: CHEST DISCOMFORT
  8. NSAID^S [Concomitant]
     Indication: MUSCULOSKELETAL PAIN
  9. NSAID^S [Concomitant]
     Indication: ARTHRALGIA

REACTIONS (1)
  - Myocardial infarction [None]
